FAERS Safety Report 14517747 (Version 1)
Quarter: 2018Q1

REPORT INFORMATION
  Report Type: Spontaneous
  Country: US (occurrence: US)
  Receive Date: 20180209
  Receipt Date: 20180209
  Transmission Date: 20180509
  Serious: Yes (Hospitalization)
  Sender: FDA-Public Use
  Company Number: None

PATIENT
  Age: 69 Year
  Sex: Female

DRUGS (23)
  1. ALPHAGAN P [Concomitant]
     Active Substance: BRIMONIDINE TARTRATE
  2. DEXILANT [Concomitant]
     Active Substance: DEXLANSOPRAZOLE
  3. ADCIRCA [Suspect]
     Active Substance: TADALAFIL
     Indication: PULMONARY HYPERTENSION
     Route: 048
     Dates: start: 201704
  4. MONTELUKAST [Concomitant]
     Active Substance: MONTELUKAST SODIUM
  5. RANITIDINE. [Concomitant]
     Active Substance: RANITIDINE
  6. FERRIC GLUCOSE [Concomitant]
  7. OPSUMIT [Concomitant]
     Active Substance: MACITENTAN
  8. FUROSEMIDE. [Concomitant]
     Active Substance: FUROSEMIDE
  9. PROBIOTIC [Concomitant]
     Active Substance: PROBIOTICS NOS
  10. ACID REDUCER [Concomitant]
  11. PREDNISONE. [Concomitant]
     Active Substance: PREDNISONE
  12. FERROUS SULF [Concomitant]
     Active Substance: FERROUS SULFATE
  13. POT CL [Concomitant]
  14. CEVIMILINE [Concomitant]
  15. FLUTICASONE. [Concomitant]
     Active Substance: FLUTICASONE
  16. MORPHINE SUL [Concomitant]
     Active Substance: MORPHINE SULFATE
  17. MUCINEX [Concomitant]
     Active Substance: GUAIFENESIN
  18. ASPIRIN. [Concomitant]
     Active Substance: ASPIRIN
  19. LATANOPROST. [Concomitant]
     Active Substance: LATANOPROST
  20. TRAMADOL. [Concomitant]
     Active Substance: TRAMADOL
  21. CARAFATE [Concomitant]
     Active Substance: SUCRALFATE
  22. VITAMIN C [Concomitant]
     Active Substance: ASCORBIC ACID
  23. SYNTHROID [Concomitant]
     Active Substance: LEVOTHYROXINE SODIUM

REACTIONS (2)
  - Transfusion [None]
  - Hospitalisation [None]
